FAERS Safety Report 24739306 (Version 2)
Quarter: 2025Q1

REPORT INFORMATION
  Report Type: Spontaneous
  Country: US (occurrence: US)
  Receive Date: 20241216
  Receipt Date: 20250220
  Transmission Date: 20250408
  Serious: No
  Sender: CALLIDITAS THERAPEUTICS AB
  Company Number: US-Calliditas-2024CAL01639

PATIENT
  Age: 49 Year
  Sex: Male
  Weight: 139.7 kg

DRUGS (14)
  1. TARPEYO [Suspect]
     Active Substance: BUDESONIDE
     Indication: IgA nephropathy
     Route: 048
     Dates: start: 20240624
  2. SEMAGLUTIDE [Concomitant]
     Active Substance: SEMAGLUTIDE
  3. LOSARTAN [Concomitant]
     Active Substance: LOSARTAN
  4. CHLORTHALIDONE [Concomitant]
     Active Substance: CHLORTHALIDONE
  5. CRESTOR [Concomitant]
     Active Substance: ROSUVASTATIN CALCIUM
  6. FARXIGA [Concomitant]
     Active Substance: DAPAGLIFLOZIN PROPANEDIOL
  7. FAMOTIDINE [Concomitant]
     Active Substance: FAMOTIDINE
  8. ZINC [Concomitant]
     Active Substance: ZINC
  9. IRON [Concomitant]
     Active Substance: IRON
  10. METAMUCIL [Concomitant]
     Active Substance: PLANTAGO SEED
  11. VITAMINS [Concomitant]
     Active Substance: VITAMINS
  12. AMLODIPINE [Concomitant]
     Active Substance: AMLODIPINE BESYLATE
  13. ZEPBOUND [Concomitant]
     Active Substance: TIRZEPATIDE
  14. EPLERENONE [Concomitant]
     Active Substance: EPLERENONE

REACTIONS (8)
  - Food craving [Not Recovered/Not Resolved]
  - Acne [Recovering/Resolving]
  - Headache [Recovered/Resolved]
  - Weight increased [Not Recovered/Not Resolved]
  - Glycosylated haemoglobin increased [Not Recovered/Not Resolved]
  - Hypertension [Not Recovered/Not Resolved]
  - Urine albumin/creatinine ratio increased [Not Recovered/Not Resolved]
  - Sleep apnoea syndrome [Not Recovered/Not Resolved]
